FAERS Safety Report 22020478 (Version 6)
Quarter: 2023Q1

REPORT INFORMATION
  Report Type: Report from Study
  Country: US (occurrence: US)
  Receive Date: 20230222
  Receipt Date: 20230321
  Transmission Date: 20230417
  Serious: No
  Sender: FDA-Public Use
  Company Number: US-002147023-NVSC2023US036975

PATIENT
  Age: 46 Year
  Sex: Female

DRUGS (4)
  1. KESIMPTA [Suspect]
     Active Substance: OFATUMUMAB
     Indication: Relapsing multiple sclerosis
     Dosage: UNK
     Route: 065
     Dates: start: 20230210
  2. KESIMPTA [Suspect]
     Active Substance: OFATUMUMAB
     Dosage: 20 MG, QMO
     Route: 065
  3. KESIMPTA [Suspect]
     Active Substance: OFATUMUMAB
     Dosage: 0.4 ML
     Route: 058
     Dates: start: 20230104
  4. KESIMPTA [Suspect]
     Active Substance: OFATUMUMAB
     Dosage: 20 MG, QMO
     Route: 058
     Dates: start: 20230217

REACTIONS (7)
  - Nasal congestion [Not Recovered/Not Resolved]
  - Cough [Not Recovered/Not Resolved]
  - Diarrhoea [Not Recovered/Not Resolved]
  - Urinary tract infection [Unknown]
  - Pyrexia [Unknown]
  - Nasopharyngitis [Unknown]
  - Device defective [Unknown]

NARRATIVE: CASE EVENT DATE: 20230217
